FAERS Safety Report 15640779 (Version 1)
Quarter: 2018Q4

REPORT INFORMATION
  Report Type: Spontaneous
  Country: US (occurrence: US)
  Receive Date: 20181120
  Receipt Date: 20181120
  Transmission Date: 20190205
  Serious: No
  Sender: FDA-Public Use
  Company Number: US-BAYER-2018-213665

PATIENT
  Sex: Female

DRUGS (1)
  1. ALEVE [Suspect]
     Active Substance: NAPROXEN SODIUM
     Indication: MENORRHAGIA

REACTIONS (4)
  - Therapeutic response unexpected [None]
  - Product use in unapproved indication [None]
  - Off label use [None]
  - Menorrhagia [None]
